FAERS Safety Report 5527856-3 (Version None)
Quarter: 2007Q4

REPORT INFORMATION
  Report Type: 
  Country: None (occurrence: None)
  Receive Date: 20071126
  Receipt Date: 20071126
  Transmission Date: 20080405
  Serious: Yes (Life-Threatening, Hospitalization)
  Sender: FDA-Public Use
  Company Number: None

PATIENT
  Age: 35 Year
  Sex: Male
  Weight: 86.1834 kg

DRUGS (1)
  1. VARENICLINE TERTRATE PFIZER [Suspect]
     Indication: SMOKING CESSATION THERAPY
     Dosage: 1 MG 2 X DAY PO
     Route: 048
     Dates: start: 20071021, end: 20071124

REACTIONS (9)
  - AGGRESSION [None]
  - ANGER [None]
  - ANXIETY [None]
  - EMOTIONAL DISORDER [None]
  - FEAR [None]
  - FRUSTRATION [None]
  - SCREAMING [None]
  - SUICIDAL IDEATION [None]
  - VERBAL ABUSE [None]
